FAERS Safety Report 4870690-8 (Version None)
Quarter: 2006Q1

REPORT INFORMATION
  Report Type: 
  Country: None (occurrence: None)
  Receive Date: 20060103
  Receipt Date: 20050413
  Transmission Date: 20060701
  Serious: Yes (Hospitalization)
  Sender: FDA-Public Use
  Company Number: AU-GLAXOSMITHKLINE-B0377715A

PATIENT
  Age: 18 Year
  Sex: Female

DRUGS (3)
  1. SALBUTAMOL [Suspect]
     Indication: ASTHMA
     Route: 055
  2. SALBUTAMOL [Suspect]
     Route: 042
  3. CORTICOSTEROID [Concomitant]
     Route: 042

REACTIONS (12)
  - ASTHMA [None]
  - DYSPNOEA [None]
  - FATIGUE [None]
  - HYPERGLYCAEMIA [None]
  - HYPOKALAEMIA [None]
  - LACTIC ACIDOSIS [None]
  - METABOLIC ACIDOSIS [None]
  - RESPIRATORY ACIDOSIS [None]
  - RESPIRATORY FAILURE [None]
  - RESPIRATORY RATE DECREASED [None]
  - SOMNOLENCE [None]
  - TACHYPNOEA [None]
